FAERS Safety Report 10292725 (Version 1)
Quarter: 2014Q3

REPORT INFORMATION
  Report Type: Spontaneous
  Country: GB (occurrence: GB)
  Receive Date: 20140710
  Receipt Date: 20140710
  Transmission Date: 20150326
  Serious: Yes (Disabling, Other)
  Sender: FDA-Public Use
  Company Number: PHHY2014GB082762

PATIENT
  Age: 28 Year
  Sex: Male
  Weight: 85.72 kg

DRUGS (5)
  1. LEVOTHYROXINE [Concomitant]
     Active Substance: LEVOTHYROXINE
  2. QUETIAPINE [Suspect]
     Active Substance: QUETIAPINE
     Indication: BIPOLAR DISORDER
     Dosage: 400 MG, UNK
     Route: 048
     Dates: start: 20110710
  3. LITHIUM CITRATE. [Concomitant]
     Active Substance: LITHIUM CITRATE
  4. LORAZEPAM. [Concomitant]
     Active Substance: LORAZEPAM
  5. PROCHLORPEMAZINE [Concomitant]

REACTIONS (3)
  - Somnolence [Not Recovered/Not Resolved]
  - Influenza like illness [Not Recovered/Not Resolved]
  - Hangover [Not Recovered/Not Resolved]

NARRATIVE: CASE EVENT DATE: 20110710
